FAERS Safety Report 6854076-2 (Version None)
Quarter: 2010Q3

REPORT INFORMATION
  Report Type: 
  Country: None (occurrence: None)
  Receive Date: 20100717
  Receipt Date: 20071227
  Transmission Date: 20110219
  Serious: Yes (Other)
  Sender: FDA-Public Use
  Company Number: US-PFIZER INC-2007108961

PATIENT
  Sex: Female
  Weight: 63.5 kg

DRUGS (6)
  1. CHANTIX [Suspect]
     Indication: SMOKING CESSATION THERAPY
     Dates: start: 20071201, end: 20071227
  2. PAROXETINE [Concomitant]
     Indication: DEPRESSION
  3. PIROXICAM [Concomitant]
     Indication: PAIN
  4. PRILOSEC [Concomitant]
     Indication: DYSPEPSIA
  5. PREMARIN [Concomitant]
  6. VITAMINS [Concomitant]

REACTIONS (2)
  - SLEEP DISORDER [None]
  - SUICIDAL IDEATION [None]
